FAERS Safety Report 14450737 (Version 3)
Quarter: 2018Q1

REPORT INFORMATION
  Report Type: Spontaneous
  Country: CN (occurrence: CN)
  Receive Date: 20180129
  Receipt Date: 20180314
  Transmission Date: 20180509
  Serious: Yes (Other)
  Sender: FDA-Public Use
  Company Number: CN-ELI_LILLY_AND_COMPANY-CN201801007899

PATIENT
  Age: 3 Year
  Sex: Male

DRUGS (22)
  1. THEPRUBICINE [Suspect]
     Active Substance: PIRARUBICIN
     Indication: NEUROBLASTOMA
  2. ETOPOSIDE. [Suspect]
     Active Substance: ETOPOSIDE
     Indication: METASTASES TO LUNG
     Dosage: 100 MG/M2, CYCLICAL
     Route: 041
  3. TOPOTECAN [Suspect]
     Active Substance: TOPOTECAN HYDROCHLORIDE
     Indication: NEUROBLASTOMA
  4. THEPRUBICINE [Suspect]
     Active Substance: PIRARUBICIN
     Indication: METASTASES TO LUNG
     Dosage: 20 MG/M2, CYCLICAL
     Route: 041
  5. IFOSFAMIDE. [Suspect]
     Active Substance: IFOSFAMIDE
     Indication: METASTASES TO PLEURA
     Dosage: 1200 1500 MG/M2 CYCLICAL
     Route: 041
  6. GEMCITABINE HYDROCHLORIDE. [Suspect]
     Active Substance: GEMCITABINE HYDROCHLORIDE
     Indication: METASTASES TO PLEURA
  7. GEMCITABINE HYDROCHLORIDE. [Suspect]
     Active Substance: GEMCITABINE HYDROCHLORIDE
     Indication: NECROSIS
  8. CARBOPLATIN. [Suspect]
     Active Substance: CARBOPLATIN
     Indication: METASTASES TO LUNG
  9. VINDESINE [Suspect]
     Active Substance: VINDESINE
     Indication: METASTASES TO PLEURA
     Dosage: 3 MG/M2, CYCLICAL
     Route: 041
     Dates: start: 20150101
  10. GEMCITABINE HYDROCHLORIDE. [Suspect]
     Active Substance: GEMCITABINE HYDROCHLORIDE
     Indication: NEUROBLASTOMA
     Dosage: 1250 MG/M2, CYCLICAL
     Route: 041
  11. GEMCITABINE HYDROCHLORIDE. [Suspect]
     Active Substance: GEMCITABINE HYDROCHLORIDE
     Indication: METASTASES TO LUNG
  12. CARBOPLATIN. [Suspect]
     Active Substance: CARBOPLATIN
     Indication: NEUROBLASTOMA
     Dosage: 150 MG/M2, CYCLICAL
     Route: 041
  13. VINDESINE [Suspect]
     Active Substance: VINDESINE
     Indication: NEUROBLASTOMA
  14. IFOSFAMIDE. [Suspect]
     Active Substance: IFOSFAMIDE
     Indication: NEUROBLASTOMA
  15. THEPRUBICINE [Suspect]
     Active Substance: PIRARUBICIN
     Indication: NECROSIS
  16. CARBOPLATIN. [Suspect]
     Active Substance: CARBOPLATIN
     Indication: NECROSIS
  17. ETOPOSIDE. [Suspect]
     Active Substance: ETOPOSIDE
     Indication: NECROSIS
  18. TOPOTECAN [Suspect]
     Active Substance: TOPOTECAN HYDROCHLORIDE
     Indication: METASTASES TO LUNG
     Dosage: 1.2  1.5 MG/M2 CYCLICAL
     Route: 041
  19. VINDESINE [Suspect]
     Active Substance: VINDESINE
     Indication: NECROSIS
  20. ETOPOSIDE. [Suspect]
     Active Substance: ETOPOSIDE
     Indication: NEUROBLASTOMA
  21. IFOSFAMIDE. [Suspect]
     Active Substance: IFOSFAMIDE
     Indication: NECROSIS
  22. TOPOTECAN [Suspect]
     Active Substance: TOPOTECAN HYDROCHLORIDE
     Indication: NECROSIS

REACTIONS (3)
  - Drug resistance [Unknown]
  - Respiratory tract inflammation [Unknown]
  - Bone marrow failure [Unknown]

NARRATIVE: CASE EVENT DATE: 20150101
